FAERS Safety Report 14082525 (Version 1)
Quarter: 2017Q4

REPORT INFORMATION
  Report Type: Spontaneous
  Country: US (occurrence: US)
  Receive Date: 20171013
  Receipt Date: 20171013
  Transmission Date: 20180321
  Serious: No
  Sender: FDA-Public Use
  Company Number: US-GLAXOSMITHKLINE-US2017156118

PATIENT
  Age: 78 Year
  Sex: Female

DRUGS (7)
  1. TEMAZEPAM. [Concomitant]
     Active Substance: TEMAZEPAM
  2. ARNUITY ELLIPTA [Suspect]
     Active Substance: FLUTICASONE FUROATE
     Indication: DYSPNOEA
     Dosage: 1 PUFF(S), 1D
     Route: 055
     Dates: start: 20171004
  3. PREDNISONE. [Concomitant]
     Active Substance: PREDNISONE
  4. CLONAZEPAM. [Concomitant]
     Active Substance: CLONAZEPAM
  5. NEXIUM [Concomitant]
     Active Substance: ESOMEPRAZOLE MAGNESIUM
  6. MAGNESIUM [Concomitant]
     Active Substance: MAGNESIUM
  7. IMURAN [Concomitant]
     Active Substance: AZATHIOPRINE

REACTIONS (5)
  - Ear pain [Not Recovered/Not Resolved]
  - Oropharyngeal pain [Not Recovered/Not Resolved]
  - Cough [Not Recovered/Not Resolved]
  - Bone pain [Not Recovered/Not Resolved]
  - Sinus pain [Not Recovered/Not Resolved]

NARRATIVE: CASE EVENT DATE: 201710
